FAERS Safety Report 26062355 (Version 1)
Quarter: 2025Q4

REPORT INFORMATION
  Report Type: Spontaneous
  Country: US (occurrence: US)
  Receive Date: 20251119
  Receipt Date: 20251119
  Transmission Date: 20260118
  Serious: Yes (Hospitalization)
  Sender: AZURITY PHARMACEUTICALS
  Company Number: US-AZURITY PHARMACEUTICALS, INC.-AZR202510-003437

PATIENT
  Sex: Male

DRUGS (1)
  1. DANZITEN [Suspect]
     Active Substance: NILOTINIB
     Indication: Philadelphia positive chronic myeloid leukaemia
     Dosage: 190 MG, BID
     Route: 065
     Dates: start: 20250329

REACTIONS (6)
  - Hospitalisation [Unknown]
  - Pulmonary mass [Unknown]
  - Renal mass [Unknown]
  - Activities of daily living decreased [Unknown]
  - Pleural effusion [Unknown]
  - Product dose omission issue [Unknown]
